FAERS Safety Report 7395202-9 (Version None)
Quarter: 2011Q2

REPORT INFORMATION
  Report Type: 
  Country: None (occurrence: None)
  Receive Date: 20110405
  Receipt Date: 20091122
  Transmission Date: 20111010
  Serious: Yes (Death, Other)
  Sender: FDA-Public Use
  Company Number: US-BAYER-200940661NA

PATIENT
  Sex: Female
  Weight: 66.667 kg

DRUGS (14)
  1. TOPROL-XL [Concomitant]
     Dosage: 50 MG, QD
     Route: 048
     Dates: start: 20050101
  2. NIACIN [Concomitant]
     Dosage: 500 MG, QD
     Route: 048
     Dates: start: 20050101
  3. HYDROCHLOROTHIAZIDE [Concomitant]
     Dosage: 25 MG, QD
     Route: 048
     Dates: start: 20050101
  4. UNCODEABLE ^UNCLASSIFIABLE^ [Concomitant]
     Dosage: 1200 ML, UNK
     Route: 042
     Dates: start: 20050114, end: 20050114
  5. POTASSIUM [POTASSIUM] [Concomitant]
     Dosage: 20 MILLEQUIVULANTS, DAILY
     Route: 048
     Dates: start: 20050101
  6. ACETYLSALICYLIC ACID SRT [Concomitant]
     Dosage: 325 MG, QD
     Dates: start: 20050101
  7. SODIUM BICARBONATE [Concomitant]
     Dosage: 25 MILLEQUIVULANTS
     Route: 042
     Dates: start: 20050114, end: 20050114
  8. RED BLOOD CELLS [Concomitant]
     Dosage: 1 U, UNK
     Dates: start: 20050114
  9. LASIX [Concomitant]
     Dosage: 40 MG, QD
     Route: 048
     Dates: start: 20050101
  10. TRASYLOL [Suspect]
     Indication: AORTIC VALVE REPLACEMENT
  11. LOTENSIN [Concomitant]
     Dosage: 20 MG, QD
     Route: 048
     Dates: start: 20050101
  12. TRASYLOL [Suspect]
     Indication: CORONARY ARTERY BYPASS
     Dosage: 200 ML, CARDIOPULMONARY BYPASS
     Route: 042
     Dates: start: 20050114, end: 20050114
  13. ISOSORBIDE [ISOSORBIDE] [Concomitant]
     Dosage: 5 MG, QD
     Route: 048
     Dates: start: 20050101
  14. ALBUMIN [ALBUMEN] [Concomitant]
     Dosage: 200 ML, UNK
     Route: 042
     Dates: start: 20050114, end: 20050114

REACTIONS (13)
  - RENAL FAILURE [None]
  - PAIN [None]
  - MULTI-ORGAN FAILURE [None]
  - EMOTIONAL DISTRESS [None]
  - INJURY [None]
  - STRESS [None]
  - FEAR [None]
  - DEATH [None]
  - RENAL INJURY [None]
  - ANXIETY [None]
  - ANHEDONIA [None]
  - RENAL IMPAIRMENT [None]
  - UNEVALUABLE EVENT [None]
